FAERS Safety Report 17524665 (Version 1)
Quarter: 2020Q1

REPORT INFORMATION
  Report Type: Spontaneous
  Country: US (occurrence: US)
  Receive Date: 20200302
  Receipt Date: 20200302
  Transmission Date: 20200409
  Serious: Yes (Death)
  Sender: FDA-Public Use
  Company Number: None

PATIENT
  Age: 75 Year
  Sex: Female
  Weight: 58.3 kg

DRUGS (1)
  1. YESCARTA [Suspect]
     Active Substance: AXICABTAGENE CILOLEUCEL
     Indication: DIFFUSE LARGE B-CELL LYMPHOMA
     Route: 042
     Dates: start: 20200211, end: 20200211

REACTIONS (11)
  - Neurotoxicity [None]
  - Cardiac arrest [None]
  - Serum ferritin increased [None]
  - C-reactive protein increased [None]
  - Cerebral infarction [None]
  - Thrombotic microangiopathy [None]
  - Hemiparesis [None]
  - Cytokine release syndrome [None]
  - Hyponatraemia [None]
  - Septic embolus [None]
  - Atrial fibrillation [None]

NARRATIVE: CASE EVENT DATE: 20200224
